FAERS Safety Report 6288652-5 (Version None)
Quarter: 2009Q3

REPORT INFORMATION
  Report Type: 
  Country: None (occurrence: None)
  Receive Date: 20090729
  Receipt Date: 20090722
  Transmission Date: 20100115
  Serious: Yes (Other)
  Sender: FDA-Public Use
  Company Number: CA-MERCK-0907CAN00114

PATIENT
  Age: 46 Year
  Sex: Male

DRUGS (1)
  1. SINGULAIR [Suspect]
     Route: 048

REACTIONS (2)
  - AFFECTIVE DISORDER [None]
  - DEPRESSION [None]
